FAERS Safety Report 14092736 (Version 1)
Quarter: 2017Q4

REPORT INFORMATION
  Report Type: Spontaneous
  Country: US (occurrence: US)
  Receive Date: 20171016
  Receipt Date: 20171016
  Transmission Date: 20180321
  Serious: Yes (Life-Threatening, Hospitalization, Disabling, Other)
  Sender: FDA-Public Use
  Company Number: None

PATIENT
  Sex: Male
  Weight: 101.25 kg

DRUGS (14)
  1. HUMIRA [Suspect]
     Active Substance: ADALIMUMAB
     Indication: PSORIASIS
     Route: 030
  2. PRAMIPEXOLE. [Concomitant]
     Active Substance: PRAMIPEXOLE
  3. FLUOXETINE [Concomitant]
     Active Substance: FLUOXETINE HYDROCHLORIDE
  4. HUMIRA [Suspect]
     Active Substance: ADALIMUMAB
     Indication: PSORIATIC ARTHROPATHY
     Route: 030
  5. GABABENTIN [Concomitant]
  6. BUPROPION XL [Concomitant]
     Active Substance: BUPROPION
  7. LISINOPRIL. [Concomitant]
     Active Substance: LISINOPRIL
  8. OMEPRAZOLE. [Concomitant]
     Active Substance: OMEPRAZOLE
  9. HYDROXYZINE PAM [Concomitant]
     Active Substance: HYDROXYZINE PAMOATE
  10. HCTZ [Concomitant]
     Active Substance: HYDROCHLOROTHIAZIDE
  11. L-THYROXINE [Concomitant]
     Active Substance: LEVOTHYROXINE
  12. TAMSULOSIN [Concomitant]
     Active Substance: TAMSULOSIN
  13. LITHIUM CARB [Concomitant]
     Active Substance: LITHIUM CARBONATE
  14. LAMOTRIGENE [Concomitant]
     Active Substance: LAMOTRIGINE

REACTIONS (2)
  - Hepatocellular carcinoma [None]
  - Hepatic steatosis [None]

NARRATIVE: CASE EVENT DATE: 20160816
